FAERS Safety Report 8841286 (Version 2)
Quarter: 2012Q4

REPORT INFORMATION
  Report Type: 
  Country: JP (occurrence: JP)
  Receive Date: 20121016
  Receipt Date: 20121025
  Transmission Date: 20130627
  Serious: Yes (Hospitalization)
  Sender: FDA-Public Use
  Company Number: JP-AMGEN-JPNSP2012059423

PATIENT
  Age: 79 Year
  Sex: Male
  Weight: 77 kg

DRUGS (15)
  1. RANMARK [Suspect]
     Indication: METASTASES TO BONE
     Dosage: 120 mg, UNK
     Route: 058
     Dates: start: 20120820
  2. PREDNISOLONE [Concomitant]
     Dosage: 5 mg, qd
     Route: 048
     Dates: start: 20101014
  3. MAGLAX [Concomitant]
     Route: 048
     Dates: start: 20120507
  4. HARNAL [Concomitant]
     Indication: BENIGN PROSTATIC HYPERPLASIA
     Route: 048
     Dates: start: 20100421
  5. PURSENNID [Concomitant]
     Route: 048
     Dates: start: 20100519
  6. LYRICA [Concomitant]
     Route: 048
     Dates: start: 20120625
  7. LOXONIN [Concomitant]
     Dosage: 180 mg, tid
     Route: 048
     Dates: start: 20120704, end: 20120826
  8. CASODEX [Concomitant]
     Indication: PROSTATE CANCER
     Route: 048
     Dates: start: 20120820
  9. OXYCONTIN [Concomitant]
     Route: 048
     Dates: start: 20120820
  10. NOVAMIN [Concomitant]
     Route: 048
     Dates: start: 20120820
  11. ARTIST [Concomitant]
     Indication: HYPERTENSION
     Route: 048
  12. WARFARIN [Concomitant]
     Indication: ATRIAL FIBRILLATION
     Route: 048
  13. BAYASPIRIN [Concomitant]
     Indication: ATRIAL FIBRILLATION
     Route: 048
  14. MEVALOTIN [Concomitant]
     Route: 048
  15. AMLODIN [Concomitant]
     Indication: HYPERTENSION
     Route: 048

REACTIONS (3)
  - Convulsion [Recovered/Resolved]
  - Pyrexia [Recovered/Resolved]
  - Hypocalcaemia [Recovered/Resolved]
